FAERS Safety Report 18198373 (Version 1)
Quarter: 2020Q3

REPORT INFORMATION
  Report Type: Spontaneous
  Country: GB (occurrence: GB)
  Receive Date: 20200826
  Receipt Date: 20200826
  Transmission Date: 20201103
  Serious: Yes (Hospitalization, Disabling)
  Sender: FDA-Public Use
  Company Number: GB-TEVA-2020-GB-1819595

PATIENT
  Age: 75 Year
  Sex: Female

DRUGS (2)
  1. CLOPIDOGREL [Suspect]
     Active Substance: CLOPIDOGREL BISULFATE
     Dosage: ? HELD ON ADMISSION, 75MG
     Route: 048
  2. ATORVASTATIN [Suspect]
     Active Substance: ATORVASTATIN
     Dosage: 20 MILLIGRAM DAILY; AT NIGHT ? WAS NOT TAKING BEFORE OR DURING ADMISSION
     Route: 048

REACTIONS (8)
  - Facial paralysis [Unknown]
  - Hemiparesis [Unknown]
  - Brain oedema [Unknown]
  - Cerebral ischaemia [Unknown]
  - Visual impairment [Unknown]
  - Haemorrhage intracranial [Recovered/Resolved with Sequelae]
  - Cerebral atrophy [Unknown]
  - Intracranial mass [Unknown]

NARRATIVE: CASE EVENT DATE: 20191213
